FAERS Safety Report 9670026 (Version 1)
Quarter: 2013Q4

REPORT INFORMATION
  Report Type: Spontaneous
  Country: US (occurrence: US)
  Receive Date: 20131105
  Receipt Date: 20131105
  Transmission Date: 20140711
  Serious: Yes (Other)
  Sender: FDA-Public Use
  Company Number: US-TEVA-442282USA

PATIENT
  Sex: Female

DRUGS (1)
  1. QVAR [Suspect]
     Route: 065

REACTIONS (1)
  - Cardiac disorder [Not Recovered/Not Resolved]
